FAERS Safety Report 7197671-6 (Version None)
Quarter: 2010Q4

REPORT INFORMATION
  Report Type: 
  Country: None (occurrence: None)
  Receive Date: 20101227
  Receipt Date: 20101215
  Transmission Date: 20110411
  Serious: Yes (Hospitalization)
  Sender: FDA-Public Use
  Company Number: CH-SANOFI-AVENTIS-2010SA075798

PATIENT
  Age: 65 Year
  Sex: Male

DRUGS (5)
  1. MULTAQ [Suspect]
     Route: 048
  2. BELOC ZOK [Interacting]
     Route: 048
  3. ASPIRIN [Concomitant]
     Route: 048
  4. ROSUVASTATIN CALCIUM [Concomitant]
     Route: 048
  5. ALLOPURINOL [Concomitant]
     Route: 048

REACTIONS (3)
  - BRADYCARDIA [None]
  - DRUG INTERACTION [None]
  - SYNCOPE [None]
